FAERS Safety Report 5611032-X (Version None)
Quarter: 2008Q1

REPORT INFORMATION
  Report Type: 
  Country: None (occurrence: None)
  Receive Date: 20080201
  Receipt Date: 20080124
  Transmission Date: 20080703
  Serious: Yes (Death, Hospitalization)
  Sender: FDA-Public Use
  Company Number: B0505721A

PATIENT
  Age: 58 Year
  Sex: Male

DRUGS (62)
  1. CARVEDILOL [Suspect]
     Indication: CARDIAC FAILURE
     Route: 048
  2. HEPARIN SODIUM INJECTION [Suspect]
     Indication: THROMBOSIS PROPHYLAXIS
     Route: 058
     Dates: start: 20031003
  3. INSULIN [Suspect]
     Indication: DIABETES MELLITUS
     Route: 058
     Dates: start: 20031003
  4. DIPIDOLOR [Suspect]
     Indication: PAIN
     Dosage: .5AMP PER DAY
     Route: 058
     Dates: start: 20031029
  5. GLUCOSE [Suspect]
     Route: 042
     Dates: start: 20031026
  6. LACTULOSE [Suspect]
     Indication: HEPATIC FAILURE
     Dosage: 20ML PER DAY
     Route: 048
  7. SAB SIMPLEX [Suspect]
     Dosage: 20ML PER DAY
     Route: 048
  8. CIPRO [Suspect]
     Indication: INFECTION
     Dosage: 400MG PER DAY
     Route: 042
  9. REFOBACIN [Suspect]
     Indication: DRUG USE FOR UNKNOWN INDICATION
  10. BEPANTHEN [Suspect]
     Indication: DRUG USE FOR UNKNOWN INDICATION
  11. KLACID [Suspect]
     Indication: INFECTION
     Dosage: 500MG PER DAY
     Route: 048
  12. CLONT [Suspect]
     Indication: INFECTION
     Dosage: 500MG PER DAY
     Route: 042
  13. DICLOFENAC [Suspect]
     Indication: PAIN
     Route: 048
  14. VANCOMYCIN [Suspect]
     Indication: INFLAMMATION
     Dosage: 1G PER DAY
     Route: 042
  15. PRIMAXIN [Suspect]
     Dosage: 500MG PER DAY
     Route: 048
  16. AMINOFUSIN [Suspect]
     Route: 042
  17. COLCHICIN [Suspect]
     Indication: PERICARDIAL EFFUSION
     Route: 048
  18. DEXPANTHENOL [Suspect]
     Route: 047
  19. SOLU-DECORTIN [Suspect]
     Dosage: 500MG PER DAY
     Route: 042
  20. VIOXX [Suspect]
     Indication: PAIN
     Dosage: 25MG PER DAY
     Route: 048
  21. FORTIMEL [Suspect]
     Indication: PARENTERAL NUTRITION
     Route: 042
  22. GELAFUNDIN [Suspect]
     Dosage: 500ML PER DAY
     Route: 042
  23. UNKNOWN DRUG [Suspect]
     Indication: PARENTERAL NUTRITION
     Route: 042
  24. ALBUMIN (HUMAN) [Suspect]
     Dosage: 100ML PER DAY
  25. HAES [Suspect]
     Dosage: 500ML PER DAY
  26. DOPAMINE HYDROCHLORIDE [Suspect]
     Indication: CARDIOVASCULAR DISORDER
     Route: 042
  27. LIPOVENOES [Suspect]
     Indication: PARENTERAL NUTRITION
     Dosage: 250ML PER DAY
     Route: 042
  28. ELECTROLYTES [Suspect]
     Route: 042
  29. SOLUVIT [Suspect]
     Route: 042
  30. ALPHA TOCOPHEROL [Suspect]
     Indication: PARENTERAL NUTRITION
     Route: 042
  31. PANTOZOL [Suspect]
     Indication: PROPHYLAXIS
     Dosage: 40MG PER DAY
     Route: 048
  32. PROTAMIN [Concomitant]
     Dates: start: 20031003
  33. ROCURONIUM BROMIDE [Concomitant]
     Dates: start: 20031003
  34. PPSB [Concomitant]
     Dates: start: 20031003
  35. UNKNOWN DRUG [Concomitant]
     Dates: start: 20031003
  36. CEFAZOLIN SODIUM [Concomitant]
     Dates: start: 20031002
  37. NITROGLYCERIN [Concomitant]
     Dates: start: 20031002
  38. PROPOFOL [Concomitant]
     Dates: start: 20031003
  39. UNKNOWN DRUG [Concomitant]
     Dates: start: 20031006
  40. ADRENALINE [Concomitant]
     Dates: start: 20031003
  41. UNKNOWN DRUG [Concomitant]
     Dates: start: 20031002
  42. CORDAREX [Concomitant]
     Dates: start: 20031003
  43. NORADRENALINE [Concomitant]
     Dates: start: 20031011
  44. PANTOZOL [Concomitant]
     Dates: start: 20031003
  45. COROTROP [Concomitant]
     Dates: start: 20031003
  46. ULCOGANT [Concomitant]
     Dates: start: 20031002
  47. MAGNESIUM SULFATE [Concomitant]
     Dates: start: 20031002
  48. FLUIMUCIL [Concomitant]
     Dates: start: 20031002
  49. TAZOBACTAM [Concomitant]
  50. UNKNOWN DRUG [Concomitant]
  51. CLINIMIX [Concomitant]
  52. AMINO ACID INJ [Concomitant]
  53. PASPERTIN [Concomitant]
  54. PROSTIGMIN BROMIDE [Concomitant]
  55. PK-MERZ [Concomitant]
  56. AMPHOTERICIN B [Concomitant]
  57. FLUIMUCIL [Concomitant]
  58. ANEXATE TAB [Concomitant]
  59. CORDAREX [Concomitant]
  60. HALDOL [Concomitant]
  61. TAVOR [Concomitant]
  62. AMPICILLIN [Concomitant]

REACTIONS (7)
  - BLISTER [None]
  - ERYTHEMA [None]
  - LIP EROSION [None]
  - MUCOSAL EROSION [None]
  - PYREXIA [None]
  - STEVENS-JOHNSON SYNDROME [None]
  - THERMAL BURN [None]
